FAERS Safety Report 8887762 (Version 2)
Quarter: 2013Q4

REPORT INFORMATION
  Report Type: Report from Study
  Country: BR (occurrence: BR)
  Receive Date: 20121106
  Receipt Date: 20131225
  Transmission Date: 20140711
  Serious: Yes (Disabling, Other)
  Sender: FDA-Public Use
  Company Number: BR-AMGEN-BRACT2011045708

PATIENT
  Age: 61 Year
  Sex: Female
  Weight: 52 kg

DRUGS (16)
  1. ETANERCEPT [Suspect]
     Indication: RHEUMATOID ARTHRITIS
     Dosage: 25 MG, 2 TIMES/WK
     Route: 058
     Dates: start: 200706, end: 201311
  2. ETANERCEPT [Suspect]
     Dosage: UNK
     Route: 065
  3. PARACETAMOL [Concomitant]
     Dosage: UNK
  4. ENALAPRIL [Concomitant]
     Indication: BLOOD PRESSURE ABNORMAL
     Dosage: 20 MG, 2X/DAY
  5. AMLODIPINE [Concomitant]
     Dosage: 25 MG
  6. AMLODIPINE [Concomitant]
     Dosage: 25 MG
  7. CALCIUM [Concomitant]
     Indication: OSTEOPOROSIS
     Dosage: UNK
  8. FAMOTIDINE [Concomitant]
     Dosage: UNK
  9. RISEDRONATE SODIUM [Concomitant]
     Dosage: 1 TABLET OF 35 MG, 1X/WEEK
     Route: 048
  10. CALTRATE + VITAMIN D [Concomitant]
     Dosage: UNK
  11. DILTIAZEM HYDROCHLORIDE [Concomitant]
     Dosage: 1 TABLET OF 60 MG, 3X/DAY
     Route: 048
  12. ENALAPRIL MALEATE [Concomitant]
     Dosage: 1 TABLET OF 20 MG, 2X/DAY
  13. CIPROFIBRATE [Concomitant]
     Dosage: 1 TABLET OF 100 MG, 1X/DAY
  14. FORTEO [Concomitant]
     Indication: OSTEOPOROSIS
     Dosage: UNK
  15. ANCORON [Concomitant]
     Indication: BLOOD PRESSURE ABNORMAL
     Dosage: UNK
  16. ALDOMET                            /00000101/ [Concomitant]
     Indication: BLOOD PRESSURE ABNORMAL
     Dosage: UNK

REACTIONS (17)
  - Immunodeficiency [Unknown]
  - Limb injury [Unknown]
  - Skin atrophy [Unknown]
  - VIIth nerve paralysis [Not Recovered/Not Resolved]
  - Vessel perforation [Not Recovered/Not Resolved]
  - Spinal fracture [Unknown]
  - Extremity necrosis [Not Recovered/Not Resolved]
  - Decubitus ulcer [Not Recovered/Not Resolved]
  - Pain [Unknown]
  - Arthritis [Unknown]
  - Wound [Unknown]
  - Eschar [Unknown]
  - Pneumonia [Unknown]
  - Erysipelas [Unknown]
  - Infection [Unknown]
  - Injection site haematoma [Not Recovered/Not Resolved]
  - Candida infection [Unknown]
